FAERS Safety Report 8978896 (Version 1)
Quarter: 2012Q4

REPORT INFORMATION
  Report Type: Spontaneous
  Country: US (occurrence: None)
  Receive Date: 20121218
  Receipt Date: 20121218
  Transmission Date: 20130627
  Serious: Yes (Other)
  Sender: FDA-Public Use
  Company Number: None

PATIENT
  Sex: Male
  Weight: 75 kg

DRUGS (1)
  1. UNISOM [Suspect]
     Indication: SLEEP DISORDER
     Dosage: couple months ago

REACTIONS (2)
  - Palpitations [None]
  - Feeling abnormal [None]
